FAERS Safety Report 7631668-4 (Version None)
Quarter: 2011Q3

REPORT INFORMATION
  Report Type: 
  Country: None (occurrence: None)
  Receive Date: 20110725
  Receipt Date: 20110412
  Transmission Date: 20111222
  Serious: No
  Sender: FDA-Public Use
  Company Number: US-BRISTOL-MYERS SQUIBB COMPANY-15546450

PATIENT
  Age: 78 Year
  Sex: Male

DRUGS (3)
  1. COUMADIN [Suspect]
     Dates: start: 20101001
  2. PLAVIX [Suspect]
     Dates: start: 20101201
  3. METOPROLOL TARTRATE [Concomitant]

REACTIONS (2)
  - ADVERSE EVENT [None]
  - DIARRHOEA [None]
